FAERS Safety Report 7440643-4 (Version None)
Quarter: 2011Q2

REPORT INFORMATION
  Report Type: 
  Country: None (occurrence: None)
  Receive Date: 20110427
  Receipt Date: 20110422
  Transmission Date: 20111010
  Serious: Yes (Death)
  Sender: FDA-Public Use
  Company Number: TR-PFIZER INC-2011087657

PATIENT
  Age: 67 Year
  Sex: Female

DRUGS (2)
  1. IMIPENEM [Suspect]
     Dosage: 500 MG, 4X/DAY
     Route: 042
     Dates: start: 20091123, end: 20091129
  2. TAZOCIN [Suspect]
     Dosage: UNK G, 4X/DAY
     Route: 042
     Dates: start: 20091119, end: 20091123

REACTIONS (1)
  - DEATH [None]
